FAERS Safety Report 25440123 (Version 2)
Quarter: 2025Q2

REPORT INFORMATION
  Report Type: Spontaneous
  Country: US (occurrence: US)
  Receive Date: 20250616
  Receipt Date: 20250617
  Transmission Date: 20250717
  Serious: No
  Sender: PFIZER
  Company Number: US-PFIZER INC-202500121800

PATIENT
  Age: 28 Year
  Sex: Male

DRUGS (1)
  1. IBRANCE [Suspect]
     Active Substance: PALBOCICLIB
     Route: 048
     Dates: start: 20250605

REACTIONS (4)
  - Alanine aminotransferase increased [Not Recovered/Not Resolved]
  - Faeces discoloured [Unknown]
  - Alopecia [Unknown]
  - Somnolence [Unknown]

NARRATIVE: CASE EVENT DATE: 20250606
